FAERS Safety Report 22330778 (Version 1)
Quarter: 2023Q2

REPORT INFORMATION
  Report Type: Other
  Country: BE (occurrence: BE)
  Receive Date: 20230517
  Receipt Date: 20230517
  Transmission Date: 20230721
  Serious: Yes (Other)
  Sender: FDA-Public Use
  Company Number: BE-CELLTRION INC.-2023BE010093

PATIENT

DRUGS (2)
  1. INFLIXIMAB [Suspect]
     Active Substance: INFLIXIMAB
     Indication: Product used for unknown indication
  2. HUMIRA [Suspect]
     Active Substance: ADALIMUMAB
     Indication: Colitis ulcerative
     Dosage: PNR: AS NECESSARY
     Route: 058
     Dates: start: 2004

REACTIONS (4)
  - Crohn^s disease [Unknown]
  - Axial spondyloarthritis [Unknown]
  - Skin disorder [Unknown]
  - Drug ineffective [Unknown]
